FAERS Safety Report 25011297 (Version 2)
Quarter: 2025Q1

REPORT INFORMATION
  Report Type: Spontaneous
  Country: US (occurrence: US)
  Receive Date: 20250226
  Receipt Date: 20250304
  Transmission Date: 20250409
  Serious: No
  Sender: AMGEN
  Company Number: US-AMGEN-USASP2025025268

PATIENT
  Age: 65 Year
  Sex: Female

DRUGS (16)
  1. REPATHA [Suspect]
     Active Substance: EVOLOCUMAB
     Indication: Product used for unknown indication
     Dosage: 140 MILLIGRAM PER MILLILITRE, Q2WK
     Route: 065
  2. REPATHA [Suspect]
     Active Substance: EVOLOCUMAB
     Dosage: 140 MILLIGRAM PER MILLILITRE, Q2WK
     Route: 065
  3. PRALUENT [Concomitant]
     Active Substance: ALIROCUMAB
     Indication: Low density lipoprotein increased
  4. ZETIA [Concomitant]
     Active Substance: EZETIMIBE
  5. HUMALOG [Concomitant]
     Active Substance: INSULIN LISPRO
  6. TRULICITY [Concomitant]
     Active Substance: DULAGLUTIDE
  7. TOPROL XL [Concomitant]
     Active Substance: METOPROLOL SUCCINATE
     Dosage: 200 MILLIGRAM, QD
     Route: 048
  8. AMLODIPINE [Concomitant]
     Active Substance: AMLODIPINE BESYLATE
     Dosage: 5 MILLIGRAM, QD
  9. HYDRODIURIL [Concomitant]
     Active Substance: HYDROCHLOROTHIAZIDE
     Dosage: 25 MILLIGRAM, QD
     Route: 048
  10. ECOTRIN [Concomitant]
     Active Substance: ASPIRIN
     Dosage: 81 MILLIGRAM, QD
     Route: 048
  11. BRILINTA [Concomitant]
     Active Substance: TICAGRELOR
     Dosage: 90 MILLIGRAM, BID
     Route: 048
  12. ALDACTONE [Concomitant]
     Active Substance: SPIRONOLACTONE
     Dosage: 25 MILLIGRAM, QD
     Route: 048
  13. MOUNJARO [Concomitant]
     Active Substance: TIRZEPATIDE
  14. NORVASC [Concomitant]
     Active Substance: AMLODIPINE BESYLATE
     Dosage: 5 MILLIGRAM, QD
     Route: 048
  15. NITROSTAT [Concomitant]
     Active Substance: NITROGLYCERIN
     Indication: Chest pain
     Route: 060
  16. MICROZIDE [Concomitant]
     Active Substance: HYDROCHLOROTHIAZIDE
     Dosage: 12.5 MILLIGRAM, QD
     Route: 048
     Dates: start: 20240828

REACTIONS (20)
  - Neck pain [Unknown]
  - Palpitations [Unknown]
  - Dermatitis allergic [Unknown]
  - Weight increased [Unknown]
  - Weight decreased [Unknown]
  - Seasonal allergy [Unknown]
  - Tinnitus [Unknown]
  - Dyspnoea [Unknown]
  - Dry skin [Unknown]
  - Sinus pain [Unknown]
  - Flatulence [Unknown]
  - Change of bowel habit [Unknown]
  - Hair disorder [Unknown]
  - Urine analysis abnormal [Unknown]
  - Metabolic function test abnormal [Unknown]
  - Wrong technique in product usage process [Unknown]
  - Device difficult to use [Unknown]
  - Dizziness [Unknown]
  - Fatigue [Unknown]
  - Headache [Unknown]

NARRATIVE: CASE EVENT DATE: 20250203
